FAERS Safety Report 9227051 (Version 1)
Quarter: 2013Q1

REPORT INFORMATION
  Report Type: Spontaneous
  Country: US (occurrence: None)
  Receive Date: 20120927
  Receipt Date: 20120927
  Transmission Date: 20140127
  Serious: Yes (Other)
  Sender: FDA-Public Use
  Company Number: 2012-01186

PATIENT
  Age: 27 Year
  Sex: Female

DRUGS (4)
  1. VALPROATE (UNKNOWN) [Suspect]
     Indication: CONVULSION
  2. OXYCODONE/ACETAMINOPHEN (UNKNOWN) [Concomitant]
  3. PREGABALIN (UNKNOWN) [Concomitant]
  4. ALPRAZOLAM (UNKNOWN) [Concomitant]

REACTIONS (1)
  - Fanconi syndrome [None]
